FAERS Safety Report 17365884 (Version 2)
Quarter: 2022Q1

REPORT INFORMATION
  Report Type: Spontaneous
  Country: US (occurrence: US)
  Receive Date: 20200204
  Receipt Date: 20220315
  Transmission Date: 20220423
  Serious: No
  Sender: FDA-Public Use
  Company Number: US-SHIRE-US202003074

PATIENT
  Sex: Male
  Weight: 99.773 kg

DRUGS (7)
  1. VYVANSE [Suspect]
     Active Substance: LISDEXAMFETAMINE DIMESYLATE
     Indication: Attention deficit hyperactivity disorder
     Dosage: 50 MILLIGRAM, 1X/DAY:QD
     Route: 048
     Dates: start: 2016
  2. VYVANSE [Suspect]
     Active Substance: LISDEXAMFETAMINE DIMESYLATE
     Dosage: 60 MILLIGRAM, 1X/DAY:QD
     Route: 048
     Dates: start: 2017
  3. VYVANSE [Suspect]
     Active Substance: LISDEXAMFETAMINE DIMESYLATE
     Dosage: 30 MILLIGRAM, 1X/WEEK
     Route: 048
     Dates: start: 20191024, end: 20200122
  4. VYVANSE [Suspect]
     Active Substance: LISDEXAMFETAMINE DIMESYLATE
     Dosage: 50 MILLIGRAM, 1X/DAY:QD
     Route: 048
     Dates: start: 20200123
  5. ADDERALL XR [Suspect]
     Active Substance: AMPHETAMINE ASPARTATE\AMPHETAMINE SULFATE\DEXTROAMPHETAMINE SACCHARATE\DEXTROAMPHETAMINE SULFATE
     Indication: Product used for unknown indication
     Dosage: 40 MILLIGRAM
     Route: 048
  6. DAYTRANA [Suspect]
     Active Substance: METHYLPHENIDATE
     Indication: Attention deficit hyperactivity disorder
     Dosage: 1 DOSAGE FORM
     Route: 062
  7. RITALIN [Suspect]
     Active Substance: METHYLPHENIDATE HYDROCHLORIDE
     Indication: Product used for unknown indication
     Route: 048

REACTIONS (11)
  - Drug ineffective [Not Recovered/Not Resolved]
  - Stress [Recovered/Resolved]
  - Incorrect dose administered [Recovered/Resolved]
  - Substance-induced mood disorder [Recovered/Resolved]
  - Anger [Recovered/Resolved]
  - Disturbance in attention [Not Recovered/Not Resolved]
  - Product physical issue [Unknown]
  - Product odour abnormal [Unknown]
  - Product tampering [Recovered/Resolved]
  - Metabolic disorder [Unknown]
  - Off label use [Unknown]

NARRATIVE: CASE EVENT DATE: 20170101
